FAERS Safety Report 8589262-7 (Version None)
Quarter: 2012Q3

REPORT INFORMATION
  Report Type: 
  Country: None (occurrence: None)
  Receive Date: 20120813
  Receipt Date: 20120813
  Transmission Date: 20120928
  Serious: Yes (Death)
  Sender: FDA-Public Use
  Company Number: US-PFIZER INC-2012196601

PATIENT
  Age: 14 Month
  Sex: Female

DRUGS (1)
  1. NIFEDIPINE [Suspect]
     Dosage: 10 MG, SINGLE
     Route: 048

REACTIONS (3)
  - TOXICITY TO VARIOUS AGENTS [None]
  - CIRCULATORY COLLAPSE [None]
  - ACCIDENTAL DRUG INTAKE BY CHILD [None]
